FAERS Safety Report 5033252-8 (Version None)
Quarter: 2006Q2

REPORT INFORMATION
  Report Type: 
  Country: None (occurrence: None)
  Receive Date: 20060620
  Receipt Date: 20060608
  Transmission Date: 20061013
  Serious: Yes (Hospitalization)
  Sender: FDA-Public Use
  Company Number: DEWYE716812JUN06

PATIENT
  Age: 17 Year
  Sex: Female

DRUGS (3)
  1. VENLAFAXINE HCL [Suspect]
     Dosage: 20 CAPSULES (OVERDOSE AMOUNT 3000 MG) ORAL
     Route: 048
     Dates: start: 20060607, end: 20060607
  2. CYMBALTA [Suspect]
     Dosage: 28 TABLETS (1680 MG) ORAL
     Route: 048
     Dates: start: 20060607, end: 20060607
  3. TRIMIPRAMINE (TRIMIPRAMINE, , 0) [Suspect]
     Dosage: 20 TABLETS (OVERDOSE AMOUNT 2000 MG) ORAL
     Route: 048
     Dates: start: 20060607, end: 20060607

REACTIONS (6)
  - AGGRESSION [None]
  - BLOOD CREATINE PHOSPHOKINASE INCREASED [None]
  - MULTIPLE DRUG OVERDOSE INTENTIONAL [None]
  - MYDRIASIS [None]
  - SUICIDE ATTEMPT [None]
  - TACHYCARDIA [None]
